FAERS Safety Report 10073407 (Version 2)
Quarter: 2014Q2

REPORT INFORMATION
  Report Type: Spontaneous
  Country: IT (occurrence: IT)
  Receive Date: 20140411
  Receipt Date: 20140602
  Transmission Date: 20141212
  Serious: Yes (Hospitalization)
  Sender: FDA-Public Use
  Company Number: IT-BRISTOL-MYERS SQUIBB COMPANY-20609160

PATIENT
  Age: 68 Year
  Sex: Female

DRUGS (7)
  1. METFORMIN HCL [Suspect]
     Indication: TYPE 2 DIABETES MELLITUS
     Dosage: TOTAL DOSE:2000MG
     Route: 048
     Dates: start: 20100809, end: 20130809
  2. VICTOZA [Suspect]
     Dosage: 1DF: 6MG/ML, SOLN FOR INJ, PREFILLED INJ
     Route: 058
  3. TIKLID [Concomitant]
     Dosage: COATED TABS, 30X250MG
     Route: 048
  4. ESOMEPRAZOLE SODIUM [Concomitant]
     Route: 048
  5. LEVOTHYROXINE SODIUM [Concomitant]
     Route: 048
  6. ROSUVASTATIN CALCIUM [Concomitant]
     Route: 048
  7. ACETYLSALICYLIC ACID [Concomitant]
     Route: 048

REACTIONS (2)
  - Anuria [Recovering/Resolving]
  - Metabolic acidosis [Recovering/Resolving]
